FAERS Safety Report 4803295-5 (Version None)
Quarter: 2005Q4

REPORT INFORMATION
  Report Type: 
  Country: None (occurrence: None)
  Receive Date: 20051013
  Receipt Date: 20050929
  Transmission Date: 20060501
  Serious: Yes (Other)
  Sender: FDA-Public Use
  Company Number: 05-000780

PATIENT
  Age: 41 Year
  Sex: Female
  Weight: 59 kg

DRUGS (2)
  1. FEMRING [Suspect]
     Indication: MENOPAUSAL SYMPTOMS
     Dosage: 0.05 MG, QD, VAGINAL
     Route: 067
     Dates: start: 20050301, end: 20050814
  2. PROZAC [Concomitant]

REACTIONS (6)
  - ESCHERICHIA VAGINITIS [None]
  - MENSTRUATION IRREGULAR [None]
  - OVARIAN CYST [None]
  - PELVIC INFECTION [None]
  - VAGINITIS BACTERIAL [None]
  - VULVOVAGINAL MYCOTIC INFECTION [None]
